FAERS Safety Report 14141244 (Version 1)
Quarter: 2017Q4

REPORT INFORMATION
  Report Type: Spontaneous
  Country: US (occurrence: None)
  Receive Date: 20171028
  Receipt Date: 20171028
  Transmission Date: 20180321
  Serious: No
  Sender: FDA-Public Use
  Company Number: None

PATIENT
  Age: 48 Year
  Sex: Male

DRUGS (1)
  1. VIREAD [Suspect]
     Active Substance: TENOFOVIR DISOPROXIL FUMARATE

REACTIONS (4)
  - Nephrolithiasis [None]
  - Arthralgia [None]
  - Alopecia [None]
  - Bone pain [None]

NARRATIVE: CASE EVENT DATE: 20171028
